FAERS Safety Report 14511467 (Version 1)
Quarter: 2018Q1

REPORT INFORMATION
  Report Type: Report from Study
  Country: US (occurrence: US)
  Receive Date: 20180209
  Receipt Date: 20180209
  Transmission Date: 20180509
  Serious: Yes (Hospitalization)
  Sender: FDA-Public Use
  Company Number: US-VIFOR (INTERNATIONAL) INC.-VIT-2018-01310

PATIENT
  Sex: Male

DRUGS (15)
  1. XARELTO [Concomitant]
     Active Substance: RIVAROXABAN
  2. CARTIA XT [Concomitant]
     Active Substance: DILTIAZEM HYDROCHLORIDE
  3. CALCITRIOL. [Concomitant]
     Active Substance: CALCITRIOL
  4. TORASEMIDE [Concomitant]
     Active Substance: TORSEMIDE
  5. ISOSORBIDE. [Concomitant]
     Active Substance: ISOSORBIDE
  6. INSULIN [Concomitant]
     Active Substance: INSULIN NOS
  7. LANTUS [Concomitant]
     Active Substance: INSULIN GLARGINE
  8. HYDRALAZINE [Concomitant]
     Active Substance: HYDRALAZINE HYDROCHLORIDE
  9. ATORVASTATIN [Concomitant]
     Active Substance: ATORVASTATIN
  10. VELTASSA [Suspect]
     Active Substance: PATIROMER
     Indication: HYPERKALAEMIA
     Route: 048
     Dates: start: 20170322
  11. HUMALOG [Concomitant]
     Active Substance: INSULIN LISPRO
  12. SPIRONOLACTONE. [Concomitant]
     Active Substance: SPIRONOLACTONE
  13. TRANDOLAPRIL. [Concomitant]
     Active Substance: TRANDOLAPRIL
  14. SODIUM BICARBONATE. [Concomitant]
     Active Substance: SODIUM BICARBONATE
  15. ERGOCALCIFEROL. [Concomitant]
     Active Substance: ERGOCALCIFEROL

REACTIONS (1)
  - Hospitalisation [Unknown]
